FAERS Safety Report 25824448 (Version 1)
Quarter: 2025Q3

REPORT INFORMATION
  Report Type: Spontaneous
  Country: US (occurrence: US)
  Receive Date: 20250919
  Receipt Date: 20250919
  Transmission Date: 20251021
  Serious: No
  Sender: AZURITY PHARMACEUTICALS
  Company Number: US-AZURITY PHARMACEUTICALS, INC.-AZR202507-002356

PATIENT
  Sex: Male

DRUGS (1)
  1. ALVESCO [Suspect]
     Active Substance: CICLESONIDE
     Indication: Emphysema

REACTIONS (4)
  - Oral discomfort [Unknown]
  - Oral mucosal erythema [Unknown]
  - Dry mouth [Unknown]
  - Drug effective for unapproved indication [Unknown]
